APPROVED DRUG PRODUCT: DEXMEDETOMIDINE HYDROCHLORIDE
Active Ingredient: DEXMEDETOMIDINE HYDROCHLORIDE
Strength: EQ 400MCG BASE/4ML (EQ 100MCG BASE/ML)
Dosage Form/Route: SOLUTION;INTRAVENOUS
Application: N206628 | Product #001 | TE Code: AP
Applicant: HQ SPECIALTY PHARMA CORP
Approved: Oct 21, 2015 | RLD: Yes | RS: No | Type: RX